FAERS Safety Report 7337330-X (Version None)
Quarter: 2011Q1

REPORT INFORMATION
  Report Type: 
  Country: None (occurrence: None)
  Receive Date: 20110308
  Receipt Date: 20090717
  Transmission Date: 20110831
  Serious: No
  Sender: FDA-Public Use
  Company Number: 2009BI022365

PATIENT
  Sex: Female

DRUGS (2)
  1. AVONEX [Concomitant]
     Indication: MULTIPLE SCLEROSIS
     Route: 030
  2. TYSABRI [Suspect]
     Indication: MULTIPLE SCLEROSIS
     Route: 042
     Dates: start: 20090625

REACTIONS (21)
  - ABASIA [None]
  - FALL [None]
  - COORDINATION ABNORMAL [None]
  - FATIGUE [None]
  - CRYING [None]
  - INTERVERTEBRAL DISC PROTRUSION [None]
  - SOMNOLENCE [None]
  - SPONDYLITIS [None]
  - BURSITIS [None]
  - DEPRESSED MOOD [None]
  - PERONEAL NERVE PALSY [None]
  - DRUG INEFFECTIVE [None]
  - SCIATICA [None]
  - THERMAL BURN [None]
  - ARTHRALGIA [None]
  - STRESS [None]
  - MUSCULOSKELETAL DISORDER [None]
  - PAIN IN EXTREMITY [None]
  - CONFUSIONAL STATE [None]
  - PAIN [None]
  - MULTIPLE SCLEROSIS RELAPSE [None]
